FAERS Safety Report 4908183-1 (Version None)
Quarter: 2006Q1

REPORT INFORMATION
  Report Type: 
  Country: None (occurrence: None)
  Receive Date: 20060210
  Receipt Date: 20060130
  Transmission Date: 20060701
  Serious: Yes (Other)
  Sender: FDA-Public Use
  Company Number: GB-JNJFOC-20050202902

PATIENT
  Sex: Male

DRUGS (1)
  1. CONCERTA [Suspect]
     Route: 065

REACTIONS (1)
  - OBSESSIVE-COMPULSIVE DISORDER [None]
